FAERS Safety Report 18075091 (Version 1)
Quarter: 2020Q3

REPORT INFORMATION
  Report Type: Spontaneous
  Country: US (occurrence: US)
  Receive Date: 20200727
  Receipt Date: 20200727
  Transmission Date: 20201103
  Serious: No
  Sender: FDA-Public Use
  Company Number: US-ABBVIE-19K-163-3171606-00

PATIENT
  Sex: Female

DRUGS (1)
  1. SYNTHROID [Suspect]
     Active Substance: LEVOTHYROXINE SODIUM
     Indication: PRODUCT USED FOR UNKNOWN INDICATION
     Route: 048

REACTIONS (7)
  - Nausea [Unknown]
  - Vision blurred [Unknown]
  - Heart rate irregular [Unknown]
  - Blood glucose increased [Recovered/Resolved]
  - Palpitations [Unknown]
  - Blood glucose decreased [Recovered/Resolved]
  - Influenza like illness [Unknown]
